FAERS Safety Report 23785491 (Version 1)
Quarter: 2024Q2

REPORT INFORMATION
  Report Type: Report from Study
  Country: US (occurrence: US)
  Receive Date: 20240425
  Receipt Date: 20240425
  Transmission Date: 20240715
  Serious: Yes (Hospitalization, Other)
  Sender: FDA-Public Use
  Company Number: US-ABBVIE-5729017

PATIENT
  Sex: Female

DRUGS (1)
  1. HUMIRA [Suspect]
     Active Substance: ADALIMUMAB
     Indication: Rheumatoid arthritis
     Route: 058
     Dates: start: 20240116

REACTIONS (7)
  - Nephrolithiasis [Recovering/Resolving]
  - Abdominal hernia [Recovering/Resolving]
  - Fallopian tube neoplasm [Recovering/Resolving]
  - Diabetes mellitus [Recovering/Resolving]
  - Vomiting [Recovering/Resolving]
  - Feeding disorder [Unknown]
  - Infection [Unknown]

NARRATIVE: CASE EVENT DATE: 20240101
